FAERS Safety Report 10219751 (Version 1)
Quarter: 2014Q2

REPORT INFORMATION
  Report Type: Report from Study
  Country: CA (occurrence: FR)
  Receive Date: 20140605
  Receipt Date: 20140605
  Transmission Date: 20141212
  Serious: Yes (Other)
  Sender: FDA-Public Use
  Company Number: FR-B.I. PHARMACEUTICALS,INC./RIDGEFIELD-2014-BI-24962GD

PATIENT
  Age: 65 Year
  Sex: Male

DRUGS (2)
  1. CATAPRES [Suspect]
     Indication: ISCHAEMIC HEART DISEASE PROPHYLAXIS
     Dosage: 0.2 MG
     Route: 048
     Dates: start: 20130412, end: 20130412
  2. CATAPRESAN TTS [Suspect]
     Indication: ISCHAEMIC HEART DISEASE PROPHYLAXIS
     Dosage: 0.2 MG
     Route: 062
     Dates: start: 20130412, end: 20130412

REACTIONS (2)
  - Myocardial infarction [Unknown]
  - Cardiac arrest [Unknown]
